FAERS Safety Report 10589537 (Version 2)
Quarter: 2015Q1

REPORT INFORMATION
  Report Type: Spontaneous
  Country: US (occurrence: None)
  Receive Date: 20141114
  Receipt Date: 20150120
  Transmission Date: 20150720
  Serious: Yes (Disabling, Other)
  Sender: FDA-Public Use
  Company Number: ZYD-14-AE-353

PATIENT
  Sex: Female

DRUGS (2)
  1. LO-ESTRIN [Concomitant]
  2. LEVOFLOXACIN. [Suspect]
     Active Substance: LEVOFLOXACIN
     Indication: URINARY TRACT INFECTION
     Route: 048
     Dates: start: 20130522, end: 20130531

REACTIONS (10)
  - Neuropathy peripheral [None]
  - Dizziness [None]
  - Tendon injury [None]
  - Anxiety [None]
  - Insomnia [None]
  - Balance disorder [None]
  - Cognitive disorder [None]
  - Gingival disorder [None]
  - Pain [None]
  - Drug hypersensitivity [None]

NARRATIVE: CASE EVENT DATE: 2013
